FAERS Safety Report 9526183 (Version 2)
Quarter: 2013Q3

REPORT INFORMATION
  Report Type: Report from Study
  Country: US (occurrence: US)
  Receive Date: 20130916
  Receipt Date: 20130916
  Transmission Date: 20140515
  Serious: Yes (Other)
  Sender: FDA-Public Use
  Company Number: US-US-EMD SERONO, INC.-7233053

PATIENT
  Age: 31 Year
  Sex: Female

DRUGS (7)
  1. REBIF [Suspect]
     Indication: SECONDARY PROGRESSIVE MULTIPLE SCLEROSIS
     Route: 058
     Dates: start: 20100927, end: 20110511
  2. REBIF [Suspect]
     Route: 058
     Dates: start: 20130806, end: 20130820
  3. COUMADIN                           /00014802/ [Concomitant]
     Indication: PULMONARY EMBOLISM
  4. COUMADIN                           /00014802/ [Concomitant]
     Indication: DEEP VEIN THROMBOSIS
  5. METHADONE [Concomitant]
     Indication: PAIN
     Route: 048
  6. OXYCODONE [Concomitant]
     Indication: PAIN
     Route: 048
  7. OXYCODONE [Concomitant]
     Route: 048

REACTIONS (2)
  - Pericardial effusion [Not Recovered/Not Resolved]
  - Tachycardia [Not Recovered/Not Resolved]
